FAERS Safety Report 5702845-4 (Version None)
Quarter: 2008Q2

REPORT INFORMATION
  Report Type: 
  Country: None (occurrence: None)
  Receive Date: 20080411
  Receipt Date: 20080402
  Transmission Date: 20081010
  Serious: Yes (Hospitalization)
  Sender: FDA-Public Use
  Company Number: FR-ASTRAZENECA-2008CG00505

PATIENT
  Age: 29785 Day
  Sex: Female

DRUGS (5)
  1. ATACAND [Suspect]
     Route: 048
     Dates: end: 20080220
  2. LASILIX [Interacting]
     Route: 048
     Dates: end: 20080220
  3. ALDACTONE [Interacting]
     Route: 048
     Dates: start: 20080214, end: 20080220
  4. PREVISCAN [Concomitant]
     Route: 048
  5. CARDENSIEL [Concomitant]
     Route: 048

REACTIONS (2)
  - DRUG INTERACTION [None]
  - HYPONATRAEMIA [None]
